FAERS Safety Report 15457206 (Version 1)
Quarter: 2018Q4

REPORT INFORMATION
  Report Type: Spontaneous
  Country: NZ (occurrence: NZ)
  Receive Date: 20181002
  Receipt Date: 20181002
  Transmission Date: 20190204
  Serious: Yes (Other)
  Sender: FDA-Public Use
  Company Number: NZ-ALSI-201800539

PATIENT
  Age: 34 Year
  Sex: Female

DRUGS (10)
  1. NITROUS OXIDE. [Suspect]
     Active Substance: NITROUS OXIDE
     Indication: GENERAL ANAESTHESIA
     Route: 055
  2. CYCLOPHOSPHAMIDE. [Suspect]
     Active Substance: CYCLOPHOSPHAMIDE
     Route: 048
  3. THIOPENTAL [Concomitant]
     Active Substance: THIOPENTAL
  4. PROPOFOL. [Concomitant]
     Active Substance: PROPOFOL
  5. HALOTHANE. [Concomitant]
     Active Substance: HALOTHANE
  6. ISOFLURANE. [Concomitant]
     Active Substance: ISOFLURANE
  7. METHOTREXATE. [Suspect]
     Active Substance: METHOTREXATE
  8. FLUOROURACIL. [Suspect]
     Active Substance: FLUOROURACIL
  9. ALFENTANIL. [Concomitant]
     Active Substance: ALFENTANIL
  10. FENTANYL. [Concomitant]
     Active Substance: FENTANYL

REACTIONS (2)
  - Neuropathy peripheral [Recovered/Resolved]
  - Drug interaction [Recovered/Resolved]
